FAERS Safety Report 17678778 (Version 1)
Quarter: 2020Q2

REPORT INFORMATION
  Report Type: Spontaneous
  Country: US (occurrence: US)
  Receive Date: 20200417
  Receipt Date: 20200417
  Transmission Date: 20200714
  Serious: No
  Sender: FDA-Public Use
  Company Number: US-ASTRAZENECA-2020SE42621

PATIENT
  Sex: Female

DRUGS (1)
  1. SYMBICORT [Suspect]
     Active Substance: BUDESONIDE\FORMOTEROL FUMARATE DIHYDRATE
     Indication: ASTHMA
     Dosage: 80/4.5 1 PUFF TWICE A DAY
     Route: 055
     Dates: start: 201003

REACTIONS (3)
  - Secretion discharge [Unknown]
  - Drug ineffective [Not Recovered/Not Resolved]
  - Chest discomfort [Unknown]
